FAERS Safety Report 4361176-8 (Version None)
Quarter: 2004Q2

REPORT INFORMATION
  Report Type: 
  Country: None (occurrence: None)
  Receive Date: 20040507
  Receipt Date: 20030714
  Transmission Date: 20050107
  Serious: Yes (Other)
  Sender: FDA-Public Use
  Company Number: PHEH2003US04932

PATIENT
  Age: 10 Year
  Sex: Female
  Weight: 61.7 kg

DRUGS (1)
  1. CARBAMAZEPINE [Suspect]
     Dosage: ORAL
     Route: 048

REACTIONS (1)
  - URTICARIA [None]
